FAERS Safety Report 9284727 (Version 2)
Quarter: 2013Q2

REPORT INFORMATION
  Report Type: Spontaneous
  Country: AU (occurrence: AU)
  Receive Date: 20130513
  Receipt Date: 20130628
  Transmission Date: 20140414
  Serious: Yes (Other)
  Sender: FDA-Public Use
  Company Number: AU-BIOGENIDEC-2013BI041515

PATIENT
  Age: 48 Year
  Sex: Female

DRUGS (4)
  1. TYSABRI [Suspect]
     Indication: MULTIPLE SCLEROSIS
     Route: 042
     Dates: start: 20090602, end: 20130327
  2. CRESTOR [Concomitant]
  3. VITAMIN D [Concomitant]
  4. MIRENA [Concomitant]
     Indication: INTRA-UTERINE CONTRACEPTIVE DEVICE
     Dates: start: 2008, end: 201303

REACTIONS (1)
  - Invasive ductal breast carcinoma [Recovered/Resolved]
